FAERS Safety Report 8837181 (Version 1)
Quarter: 2012Q4

REPORT INFORMATION
  Report Type: 
  Country: MX (occurrence: MX)
  Receive Date: 20121012
  Receipt Date: 20121012
  Transmission Date: 20130627
  Serious: Yes (Other)
  Sender: FDA-Public Use
  Company Number: PHHY2012MX090487

PATIENT
  Sex: Female

DRUGS (1)
  1. EXFORGE HCT [Suspect]
     Indication: HYPERTENSION
     Dosage: 0.5 DF (160/5/12.5 mg), daily
     Dates: start: 201010

REACTIONS (2)
  - Pneumonia [Recovered/Resolved]
  - Wrong technique in drug usage process [Unknown]
